FAERS Safety Report 14249259 (Version 1)
Quarter: 2017Q4

REPORT INFORMATION
  Report Type: Spontaneous
  Country: CZ (occurrence: CZ)
  Receive Date: 20171204
  Receipt Date: 20171204
  Transmission Date: 20180321
  Serious: Yes (Hospitalization, Other)
  Sender: FDA-Public Use
  Company Number: CZ-IMPAX LABORATORIES, INC-2017-IPXL-03398

PATIENT
  Age: 42 Year
  Sex: Male

DRUGS (10)
  1. FUROSEMIDE. [Suspect]
     Active Substance: FUROSEMIDE
     Indication: HYPERTENSION
     Dosage: 40 MG, UNK
     Route: 042
  2. MORPHINE SULFATE EXTENDED-RELEASE [Suspect]
     Active Substance: MORPHINE SULFATE
     Dosage: 3 MG, UNK
     Route: 042
  3. ISOSORBIDE DINITRATE ER [Suspect]
     Active Substance: ISOSORBIDE DINITRATE
     Indication: PULMONARY OEDEMA
     Dosage: 4 MG, UNK
     Route: 042
  4. FUROSEMIDE. [Suspect]
     Active Substance: FUROSEMIDE
     Indication: PULMONARY OEDEMA
  5. ISOSORBIDE DINITRATE ER [Suspect]
     Active Substance: ISOSORBIDE DINITRATE
     Indication: HYPERTENSION
     Dosage: 3 MG, UNK
     Route: 042
  6. PERINDOPRIL [Concomitant]
     Active Substance: PERINDOPRIL
     Indication: HYPERTENSION
     Dosage: 4 MG, ONCE DAILY IN THE MORNING
     Route: 065
  7. OXYGEN. [Concomitant]
     Active Substance: OXYGEN
     Indication: PULMONARY OEDEMA
     Dosage: HIGH FLOW BY FACE MASK, UNK
     Route: 065
  8. AMLODIPINE [Concomitant]
     Active Substance: AMLODIPINE BESYLATE
     Indication: HYPERTENSION
     Dosage: 5 MG, ONCE DAILY IN THE MORNING
     Route: 065
  9. MORPHINE SULFATE EXTENDED-RELEASE [Suspect]
     Active Substance: MORPHINE SULFATE
     Indication: ACUTE MYOCARDIAL INFARCTION
     Dosage: 4 MG, UNK
     Route: 042
  10. OXYGEN. [Concomitant]
     Active Substance: OXYGEN
     Indication: HYPERTENSION

REACTIONS (3)
  - Ventricular fibrillation [Recovered/Resolved]
  - Coronary artery occlusion [Recovered/Resolved]
  - Product use in unapproved indication [Unknown]
